FAERS Safety Report 6774074-7 (Version None)
Quarter: 2010Q2

REPORT INFORMATION
  Report Type: 
  Country: None (occurrence: None)
  Receive Date: 20100616
  Receipt Date: 20100616
  Transmission Date: 20101027
  Serious: No
  Sender: FDA-Public Use
  Company Number: None

PATIENT
  Age: 29 Year
  Sex: Male
  Weight: 90.7194 kg

DRUGS (2)
  1. CO-CIPROFLOXACIN 250MG BAYER [Suspect]
     Indication: BACTERIAL INFECTION
     Dosage: 250MG 3 TIMES PER DAY PO
     Route: 048
     Dates: start: 20100609
  2. FLAGYL [Concomitant]

REACTIONS (4)
  - ARTHRALGIA [None]
  - JOINT CREPITATION [None]
  - MUSCULOSKELETAL PAIN [None]
  - PAIN IN EXTREMITY [None]
